FAERS Safety Report 17415364 (Version 1)
Quarter: 2020Q1

REPORT INFORMATION
  Report Type: Spontaneous
  Country: JP (occurrence: JP)
  Receive Date: 20200213
  Receipt Date: 20200213
  Transmission Date: 20200409
  Serious: Yes (Other)
  Sender: FDA-Public Use
  Company Number: JP-ALLERGAN-2005460US

PATIENT
  Sex: Male

DRUGS (7)
  1. LANSOPRAZOLE TOWA [Concomitant]
     Active Substance: LANSOPRAZOLE
     Route: 065
  2. MEMANTINE HCL - BP [Suspect]
     Active Substance: MEMANTINE
     Indication: DEMENTIA ALZHEIMER^S TYPE
     Dosage: 5 MG, QD
     Route: 048
     Dates: start: 201904, end: 20190524
  3. MAALOX ANTACID [Concomitant]
     Active Substance: ALUMINUM HYDROXIDE\DIMETHICONE\MAGNESIUM HYDROXIDE
     Route: 065
  4. DONEPEZIL. [Concomitant]
     Active Substance: DONEPEZIL
  5. DOXAZOSIN [Concomitant]
     Active Substance: DOXAZOSIN MESYLATE
     Route: 065
  6. MEMANTINE HCL - BP [Suspect]
     Active Substance: MEMANTINE
     Indication: VASCULAR DEMENTIA
  7. CETAPRIL [Concomitant]
     Active Substance: ALACEPRIL
     Route: 065

REACTIONS (1)
  - Rhabdomyolysis [Recovered/Resolved]

NARRATIVE: CASE EVENT DATE: 201905
